FAERS Safety Report 4614116-8 (Version None)
Quarter: 2005Q1

REPORT INFORMATION
  Report Type: 
  Country: None (occurrence: None)
  Receive Date: 20050316
  Receipt Date: 20050303
  Transmission Date: 20050727
  Serious: Yes (Hospitalization)
  Sender: FDA-Public Use
  Company Number: 2005040570

PATIENT
  Age: 46 Year
  Sex: Female

DRUGS (2)
  1. SULFASALAZINE [Suspect]
     Indication: ENTEROCOLITIS HAEMORRHAGIC
     Dosage: ORAL
     Route: 048
     Dates: start: 20040908, end: 20040929
  2. MESALAMINE [Concomitant]

REACTIONS (6)
  - ARTHRALGIA [None]
  - DRUG RASH WITH EOSINOPHILIA AND SYSTEMIC SYMPTOMS [None]
  - GENERAL PHYSICAL HEALTH DETERIORATION [None]
  - HEPATITIS [None]
  - MYALGIA [None]
  - PAIN [None]
